FAERS Safety Report 6414224-5 (Version None)
Quarter: 2009Q4

REPORT INFORMATION
  Report Type: 
  Country: None (occurrence: None)
  Receive Date: 20091026
  Receipt Date: 20091016
  Transmission Date: 20100525
  Serious: Yes (Hospitalization)
  Sender: FDA-Public Use
  Company Number: US-RB-022343-09

PATIENT
  Age: 61 Year
  Sex: Female

DRUGS (1)
  1. SUBOXONE [Suspect]
     Indication: DRUG USE FOR UNKNOWN INDICATION
     Dosage: BEEN TAKING SUBOXONE FOR 3 DAYS NOW - NO OTHER DOSING DETAILS KNOWN
     Route: 065
     Dates: start: 20091013

REACTIONS (1)
  - HEAT ILLNESS [None]
